FAERS Safety Report 5702662-5 (Version None)
Quarter: 2008Q2

REPORT INFORMATION
  Report Type: 
  Country: None (occurrence: None)
  Receive Date: 20080411
  Receipt Date: 20080122
  Transmission Date: 20081010
  Serious: No
  Sender: FDA-Public Use
  Company Number: US-ASTRAZENECA-2008UW01636

PATIENT
  Age: 72 Year
  Sex: Female

DRUGS (1)
  1. TENORMIN [Suspect]
     Indication: HEART RATE IRREGULAR
     Dosage: 25 MG QD/1/2 OF 50 MG TABLET
     Route: 048
     Dates: start: 20080119

REACTIONS (3)
  - DIZZINESS [None]
  - INSOMNIA [None]
  - NAUSEA [None]
